FAERS Safety Report 8921054 (Version 1)
Quarter: 2012Q4

REPORT INFORMATION
  Report Type: 
  Country: SE (occurrence: SE)
  Receive Date: 20121121
  Receipt Date: 20121121
  Transmission Date: 20130627
  Serious: Yes (Hospitalization)
  Sender: FDA-Public Use
  Company Number: SE-PFIZER INC-2012288397

PATIENT
  Age: 50 Year
  Sex: Male
  Weight: 69 kg

DRUGS (10)
  1. GENOTROPIN [Suspect]
     Dosage: 0.3 mg, 1x/day, 7 injections/week
     Route: 058
     Dates: start: 20020419
  2. TESTOVIRON-DEPOT [Concomitant]
     Indication: LUTEINIZING HORMONE DEFICIENCY
     Dosage: UNK
     Dates: start: 20020419
  3. TESTOVIRON-DEPOT [Concomitant]
     Indication: FOLLICLE-STIMULATING HORMONE DEFICIENCY
  4. TESTOVIRON-DEPOT [Concomitant]
     Indication: TESTICULAR HYPOGONADISM
  5. CORTAL [Concomitant]
     Indication: ACTH DECREASED
     Dosage: UNK
     Dates: start: 20021213, end: 20030730
  6. LAMICTAL ^BURROUGHS WELLCOME^ [Concomitant]
     Indication: EPILEPSY
     Dosage: UNK
     Dates: start: 19991201
  7. LAMICTAL ^BURROUGHS WELLCOME^ [Concomitant]
     Indication: CONVULSIONS
  8. DESMOPRESSIN [Concomitant]
     Indication: ADH DECREASED
     Dosage: UNK
     Dates: start: 20020129
  9. BEHEPAN [Concomitant]
     Indication: UNSPECIFIED VITAMIN B DEFICIENCY
     Dosage: UNK
     Dates: start: 19900715
  10. TROMBYL [Concomitant]
     Indication: ANTICOAGULANT THERAPY
     Dosage: UNK
     Dates: start: 20030109, end: 20030131

REACTIONS (1)
  - Cholelithiasis [Unknown]
